FAERS Safety Report 4406422-7 (Version None)
Quarter: 2004Q3

REPORT INFORMATION
  Report Type: 
  Country: None (occurrence: None)
  Receive Date: 20040723
  Receipt Date: 20030728
  Transmission Date: 20050211
  Serious: No
  Sender: FDA-Public Use
  Company Number: US-GLAXOSMITHKLINE-A0418435A

PATIENT
  Age: 69 Year
  Sex: Female

DRUGS (6)
  1. AVANDIA [Suspect]
     Dosage: 2MG PER DAY
     Route: 048
     Dates: start: 20021201, end: 20030301
  2. GLUCOPHAGE [Concomitant]
  3. GLIPIZIDE [Concomitant]
  4. VERAPAMIL [Concomitant]
  5. UNIVASC [Concomitant]
  6. GEMFIBROZIL [Concomitant]

REACTIONS (2)
  - HYPOGLYCAEMIA [None]
  - WEIGHT INCREASED [None]
